FAERS Safety Report 4454173-5 (Version None)
Quarter: 2004Q3

REPORT INFORMATION
  Report Type: 
  Country: None (occurrence: None)
  Receive Date: 20040824
  Receipt Date: 20040528
  Transmission Date: 20050211
  Serious: No
  Sender: FDA-Public Use
  Company Number: SU-2004-002420

PATIENT
  Age: 67 Year
  Sex: Female
  Weight: 68.0396 kg

DRUGS (3)
  1. BENICAR [Suspect]
     Indication: HYPERTENSION
     Dosage: 40 MG QD PO
     Route: 048
     Dates: start: 20040101, end: 20040101
  2. BENICAR [Suspect]
     Indication: HYPERTENSION
     Dosage: 40 MG QD PO
     Route: 048
     Dates: start: 20040101
  3. CENESTIN [Concomitant]

REACTIONS (1)
  - DRUG INEFFECTIVE [None]
